FAERS Safety Report 6640667-0 (Version None)
Quarter: 2010Q1

REPORT INFORMATION
  Report Type: 
  Country: None (occurrence: None)
  Receive Date: 20100302
  Receipt Date: 20100119
  Transmission Date: 20100710
  Serious: No
  Sender: FDA-Public Use
  Company Number: 2009301186

PATIENT
  Sex: Male

DRUGS (1)
  1. TOVIAZ [Suspect]
     Indication: HYPERTONIC BLADDER

REACTIONS (1)
  - PAIN IN EXTREMITY [None]
